FAERS Safety Report 8204538-0 (Version None)
Quarter: 2012Q1

REPORT INFORMATION
  Report Type: 
  Country: None (occurrence: None)
  Receive Date: 20120313
  Receipt Date: 20120308
  Transmission Date: 20120608
  Serious: Yes (Other)
  Sender: FDA-Public Use
  Company Number: BR-PFIZER INC-2012050829

PATIENT
  Sex: Male

DRUGS (1)
  1. LIPITOR [Suspect]
     Indication: BLOOD CHOLESTEROL
     Dosage: 20 MG (A HALF OF 40MG), DAILY
     Route: 048
     Dates: end: 20120222

REACTIONS (5)
  - FORMICATION [None]
  - JOINT SWELLING [None]
  - ARTHRALGIA [None]
  - NEUROPATHY PERIPHERAL [None]
  - MYALGIA [None]
